FAERS Safety Report 4544219-8 (Version None)
Quarter: 2005Q1

REPORT INFORMATION
  Report Type: 
  Country: None (occurrence: None)
  Receive Date: 20050103
  Receipt Date: 20050103
  Transmission Date: 20050727
  Serious: Yes (Other)
  Sender: FDA-Public Use
  Company Number: None

PATIENT
  Age: 34 Year
  Sex: Female
  Weight: 79.3795 kg

DRUGS (1)
  1. ZICAM [Suspect]
     Indication: SINUS CONGESTION
     Dates: start: 20041012, end: 20041014

REACTIONS (2)
  - AGEUSIA [None]
  - ANOSMIA [None]
